FAERS Safety Report 20132593 (Version 1)
Quarter: 2021Q4

REPORT INFORMATION
  Report Type: Report from Study
  Country: AR (occurrence: AR)
  Receive Date: 20211130
  Receipt Date: 20211130
  Transmission Date: 20220303
  Serious: Yes (Death)
  Sender: FDA-Public Use
  Company Number: AR-NOVARTISPH-NVSC2021AR271825

PATIENT
  Sex: Male

DRUGS (1)
  1. DIOVAN [Suspect]
     Active Substance: VALSARTAN
     Indication: Hypertension
     Dosage: 1 DOSAGE FORM, QD (1 OF 160)
     Route: 065

REACTIONS (4)
  - Amyotrophic lateral sclerosis [Fatal]
  - Motor neurone disease [Fatal]
  - Stress [Unknown]
  - Fatigue [Unknown]
